FAERS Safety Report 7620696 (Version 8)
Quarter: 2012Q4

REPORT INFORMATION
  Report Type: Report from Study
  Country: BR (occurrence: BR)
  Receive Date: 20101007
  Receipt Date: 20121113
  Transmission Date: 20130627
  Serious: Yes (Hospitalization)
  Sender: FDA-Public Use
  Company Number: BR-BRISTOL-MYERS SQUIBB COMPANY-15320385

PATIENT
  Age: 46 Year
  Sex: Female
  Weight: 68 kg

DRUGS (27)
  1. ATAZANAVIR [Suspect]
     Indication: HIV INFECTION
     Dosage: last dose:04Oct2010
     Route: 048
     Dates: start: 20100218
  2. COMBIVIR [Suspect]
     Indication: HIV INFECTION
     Dosage: 1 DF=150/300mg,last dose:04Oct2010
     Route: 048
     Dates: start: 20091019
  3. SCOPOLAMINE [Concomitant]
     Indication: BACK PAIN
     Dates: start: 20101001, end: 20101001
  4. SCOPOLAMINE [Concomitant]
     Indication: ANXIETY
     Dates: start: 20101001, end: 20101001
  5. DIPIRONE [Concomitant]
     Indication: BACK PAIN
     Dates: start: 20101001, end: 20101001
  6. DIPIRONE [Concomitant]
     Indication: ANXIETY
     Dates: start: 20101001, end: 20101001
  7. METOCLOPRAMIDE [Concomitant]
     Indication: BACK PAIN
     Dates: start: 20101001, end: 20101001
  8. METOCLOPRAMIDE [Concomitant]
     Indication: ANXIETY
     Dates: start: 20101001, end: 20101001
  9. MORFIN [Concomitant]
     Indication: BACK PAIN
     Dates: start: 20101001, end: 20101001
  10. MORFIN [Concomitant]
     Indication: ANXIETY
     Dates: start: 20101001, end: 20101001
  11. DIAZEPAM [Concomitant]
     Indication: BACK PAIN
     Dates: start: 20101001, end: 20101001
  12. DIAZEPAM [Concomitant]
     Indication: ANXIETY
     Dates: start: 20101001, end: 20101001
  13. FENERGAN [Concomitant]
     Indication: BACK PAIN
     Dates: start: 20101001, end: 20101001
  14. FENERGAN [Concomitant]
     Indication: ANXIETY
     Dates: start: 20101001, end: 20101001
  15. KETOPROFEN [Concomitant]
     Indication: NEPHROLITHIASIS
     Dosage: 1Oct10-01Oct10,07Oct10-13Oct2010.
     Dates: start: 20101001, end: 20101013
  16. KETOPROFEN [Concomitant]
     Indication: BACK PAIN
     Dosage: 1Oct10-01Oct10,07Oct10-13Oct2010.
     Dates: start: 20101001, end: 20101013
  17. KETOPROFEN [Concomitant]
     Indication: ANXIETY
     Dosage: 1Oct10-01Oct10,07Oct10-13Oct2010.
     Dates: start: 20101001, end: 20101013
  18. ORPHENADRINE [Concomitant]
     Indication: BACK PAIN
     Dosage: 2-4Oct10,5Oct10-13Oct2010
     Dates: start: 20101002, end: 20101013
  19. ORPHENADRINE [Concomitant]
     Indication: ANXIETY
     Dosage: 2-4Oct10,5Oct10-13Oct2010
     Dates: start: 20101002, end: 20101013
  20. CODEINE + ACETAMINOPHEN [Concomitant]
     Indication: BACK PAIN
     Dosage: 2-4Oct10,05Oct10-13Oct10.
     Dates: start: 20101002, end: 20101013
  21. CODEINE + ACETAMINOPHEN [Concomitant]
     Indication: ANXIETY
     Dosage: 2-4Oct10,05Oct10-13Oct10.
     Dates: start: 20101002, end: 20101013
  22. CIPROFLOXACIN [Concomitant]
     Indication: INFECTION
     Dates: start: 20101002, end: 20101004
  23. CAFFEINE + DIPYRONE [Concomitant]
     Indication: BACK PAIN
     Dosage: 2Oct10-04Oct10,05Oct10-13Oct10
     Dates: start: 20101002, end: 20101013
  24. CAFFEINE + DIPYRONE [Concomitant]
     Indication: ANXIETY
     Dosage: 2Oct10-04Oct10,05Oct10-13Oct10
     Dates: start: 20101002, end: 20101013
  25. HYOSCINE [Concomitant]
     Indication: BACK PAIN
     Dosage: 02Oct10-04Oct10,5Oct10-13Oct10
     Dates: start: 20101002, end: 20101013
  26. HYOSCINE [Concomitant]
     Indication: ANXIETY
     Dosage: 02Oct10-04Oct10,5Oct10-13Oct10
     Dates: start: 20101002, end: 20101013
  27. RAMIPRIL [Concomitant]
     Indication: PROTEINURIA
     Dates: start: 20100920, end: 20101119

REACTIONS (1)
  - Renal colic [Recovered/Resolved]
